FAERS Safety Report 5753481-5 (Version None)
Quarter: 2008Q2

REPORT INFORMATION
  Report Type: 
  Country: None (occurrence: None)
  Receive Date: 20080530
  Receipt Date: 20080329
  Transmission Date: 20081010
  Serious: No
  Sender: FDA-Public Use
  Company Number: US-AMGEN-US271817

PATIENT
  Sex: Male

DRUGS (3)
  1. VECTIBIX [Suspect]
     Indication: DRUG USE FOR UNKNOWN INDICATION
     Dates: start: 20080301
  2. PLAVIX [Concomitant]
  3. UNSPECIFIED PAIN MEDICATION [Concomitant]

REACTIONS (1)
  - RESTLESSNESS [None]
